FAERS Safety Report 21547968 (Version 2)
Quarter: 2023Q1

REPORT INFORMATION
  Report Type: Spontaneous
  Country: US (occurrence: US)
  Receive Date: 20221103
  Receipt Date: 20230217
  Transmission Date: 20230418
  Serious: No
  Sender: FDA-Public Use
  Company Number: US-LUPIN PHARMACEUTICALS INC.-2022-12816

PATIENT

DRUGS (1)
  1. ALBUTEROL SULFATE [Suspect]
     Active Substance: ALBUTEROL SULFATE
     Indication: Asthma
     Dosage: UNK (LOT OF TIMES IN A DAY)
     Dates: start: 20221012

REACTIONS (7)
  - Wrong technique in product usage process [Unknown]
  - Device deposit issue [Unknown]
  - Wrong technique in product usage process [Unknown]
  - Circumstance or information capable of leading to device use error [Unknown]
  - Device issue [Unknown]
  - Dyspnoea [Unknown]
  - Device use issue [Unknown]
